FAERS Safety Report 9178140 (Version 1)
Quarter: 2013Q1

REPORT INFORMATION
  Report Type: Spontaneous
  Country: US (occurrence: US)
  Receive Date: 20130321
  Receipt Date: 20130321
  Transmission Date: 20140127
  Serious: Yes (Other)
  Sender: FDA-Public Use
  Company Number: US-BAYER-2013-033857

PATIENT
  Age: 55 Year
  Sex: Female
  Weight: 72.56 kg

DRUGS (3)
  1. ALKA-SELTZER PLUS [Suspect]
     Indication: NASOPHARYNGITIS
     Dosage: 2 DF, EVERY FOUR HOURS
     Route: 048
     Dates: start: 201303, end: 20130315
  2. ALKA-SELTZER PLUS COLD [Suspect]
     Indication: NASOPHARYNGITIS
     Dosage: UNK
     Dates: start: 201303, end: 20130315
  3. AMOXICILLIN [Concomitant]

REACTIONS (2)
  - Blood glucose increased [Not Recovered/Not Resolved]
  - Dizziness [Not Recovered/Not Resolved]
